FAERS Safety Report 18742003 (Version 1)
Quarter: 2021Q1

REPORT INFORMATION
  Report Type: Spontaneous
  Country: US (occurrence: US)
  Receive Date: 20210114
  Receipt Date: 20210114
  Transmission Date: 20210419
  Serious: Yes (Death, Hospitalization)
  Sender: FDA-Public Use
  Company Number: US-PRINSTON PHARMACEUTICAL INC.-2021PRN00005

PATIENT
  Age: 35 Year
  Sex: Female
  Weight: 59 kg

DRUGS (2)
  1. METHYLPHENIDATE. [Concomitant]
     Active Substance: METHYLPHENIDATE
     Route: 048
  2. BUPROPION HYDROCHLORIDE. [Suspect]
     Active Substance: BUPROPION HYDROCHLORIDE
     Dosage: 90 TABLETS
     Route: 048

REACTIONS (7)
  - Intentional overdose [Recovered/Resolved]
  - Metabolic acidosis [Unknown]
  - Toxicity to various agents [Not Recovered/Not Resolved]
  - Electrocardiogram QT prolonged [Not Recovered/Not Resolved]
  - Brain death [Fatal]
  - Status epilepticus [Unknown]
  - Circulatory collapse [Fatal]
